FAERS Safety Report 5340804-4 (Version None)
Quarter: 2007Q2

REPORT INFORMATION
  Report Type: 
  Country: None (occurrence: None)
  Receive Date: 20070405
  Receipt Date: 20070207
  Transmission Date: 20071010
  Serious: Yes (Other)
  Sender: FDA-Public Use
  Company Number: US200701004773

PATIENT
  Age: 60 Year
  Sex: Female

DRUGS (8)
  1. CYMBALTA [Suspect]
     Indication: NEUROPATHY PERIPHERAL
     Dosage: 60 MG, DAILY (1/D), ORAL
     Route: 048
     Dates: start: 20061117, end: 20061201
  2. CYMBALTA [Suspect]
     Indication: NEUROPATHY PERIPHERAL
     Dosage: 60 MG, DAILY (1/D), ORAL
     Route: 048
     Dates: start: 20061201
  3. LUNESTA [Concomitant]
  4. ZESTROETIC (HYDROCHLOROTHIAZIDE, LISINOPRIL) [Concomitant]
  5. ADVAIR DISKUS (FLUTICASONE PROPIONATE, SALMETEROL XINAFOATE) [Concomitant]
  6. AMBIEN [Concomitant]
  7. PREGABALIN (PREGABALIN) [Concomitant]
  8. PRINZIDE [Concomitant]

REACTIONS (1)
  - MUSCLE SPASMS [None]
